FAERS Safety Report 6062882-X (Version None)
Quarter: 2009Q1

REPORT INFORMATION
  Report Type: 
  Country: None (occurrence: None)
  Receive Date: 20090203
  Receipt Date: 20090129
  Transmission Date: 20090719
  Serious: Yes (Other)
  Sender: FDA-Public Use
  Company Number: B0557082A

PATIENT
  Sex: Female

DRUGS (1)
  1. CIGANON CQ1 [Suspect]
     Indication: SMOKING CESSATION THERAPY
     Dosage: 1PAT PER DAY
     Route: 062

REACTIONS (2)
  - INITIAL INSOMNIA [None]
  - RESPIRATORY DISTRESS [None]
